FAERS Safety Report 7557846-0 (Version None)
Quarter: 2011Q2

REPORT INFORMATION
  Report Type: 
  Country: None (occurrence: None)
  Receive Date: 20110613
  Receipt Date: 20110608
  Transmission Date: 20111010
  Serious: Yes (Hospitalization)
  Sender: FDA-Public Use
  Company Number: 2011SP026302

PATIENT
  Age: 51 Year
  Sex: Female

DRUGS (3)
  1. EBASTINE [Suspect]
     Indication: ARTHROPOD BITE
     Dosage: 1 DF;QD;PO
     Route: 048
     Dates: start: 20110514, end: 20110514
  2. ATARAX [Concomitant]
  3. DIPROSONE [Suspect]
     Indication: ARTHROPOD BITE
     Dosage: 1 DF;BID
     Dates: start: 20110513, end: 20110514

REACTIONS (3)
  - RASH GENERALISED [None]
  - BURNING SENSATION [None]
  - RASH MACULO-PAPULAR [None]
